FAERS Safety Report 6243411-4 (Version None)
Quarter: 2009Q2

REPORT INFORMATION
  Report Type: 
  Country: None (occurrence: None)
  Receive Date: 20090622
  Receipt Date: 20090622
  Transmission Date: 20091009
  Serious: Yes (Other)
  Sender: FDA-Public Use
  Company Number: None

PATIENT
  Age: 31 Year
  Sex: Female
  Weight: 72.5755 kg

DRUGS (2)
  1. ZICAM [Suspect]
     Indication: NASOPHARYNGITIS
     Dosage: 1 SWAB AS NEEDED NASAL
     Route: 045
     Dates: start: 20080101, end: 20090101
  2. ZICAM [Suspect]
     Indication: PROPHYLAXIS
     Dosage: 1 SWAB AS NEEDED NASAL
     Route: 045
     Dates: start: 20080101, end: 20090101

REACTIONS (4)
  - AGEUSIA [None]
  - ANOSMIA [None]
  - HYPERSENSITIVITY [None]
  - HYPOSMIA [None]
